FAERS Safety Report 24552747 (Version 1)
Quarter: 2024Q4

REPORT INFORMATION
  Report Type: Spontaneous
  Country: PL (occurrence: PL)
  Receive Date: 20241027
  Receipt Date: 20241027
  Transmission Date: 20250115
  Serious: Yes (Hospitalization, Other)
  Sender: ABBVIE
  Company Number: PL-ABBVIE-5974821

PATIENT
  Age: 64 Year
  Sex: Female

DRUGS (6)
  1. VENETOCLAX [Suspect]
     Active Substance: VENETOCLAX
     Indication: Acute myeloid leukaemia
     Dosage: 400 MILLIGRAM
     Route: 048
     Dates: start: 20220429
  2. VENETOCLAX [Suspect]
     Active Substance: VENETOCLAX
     Indication: Acute myeloid leukaemia
     Dosage: 200 MILLIGRAM
     Route: 048
     Dates: start: 2022
  3. VENETOCLAX [Suspect]
     Active Substance: VENETOCLAX
     Indication: Acute myeloid leukaemia
     Route: 048
     Dates: start: 2022
  4. VENETOCLAX [Suspect]
     Active Substance: VENETOCLAX
     Indication: Acute myeloid leukaemia
     Dosage: 100 MILLIGRAM
     Route: 048
     Dates: start: 20220325
  5. AZACITIDINE [Concomitant]
     Active Substance: AZACITIDINE
     Indication: Acute myeloid leukaemia
     Dates: start: 20220429
  6. AZACITIDINE [Concomitant]
     Active Substance: AZACITIDINE
     Indication: Acute myeloid leukaemia
     Dates: start: 20220325

REACTIONS (12)
  - Agranulocytosis [Recovered/Resolved]
  - Agranulocytosis [Unknown]
  - Thrombocytopenia [Unknown]
  - Pyrexia [Recovering/Resolving]
  - Left ventricular dysfunction [Unknown]
  - Chills [Unknown]
  - White blood cell count abnormal [Unknown]
  - Pharyngitis [Unknown]
  - Pyrexia [Unknown]
  - Infection [Unknown]
  - C-reactive protein increased [Unknown]
  - Ventricular remodelling [Unknown]

NARRATIVE: CASE EVENT DATE: 20220101
